FAERS Safety Report 11163773 (Version 1)
Quarter: 2015Q2

REPORT INFORMATION
  Report Type: Spontaneous
  Country: US (occurrence: US)
  Receive Date: 20150604
  Receipt Date: 20150604
  Transmission Date: 20150821
  Serious: No
  Sender: FDA-Public Use
  Company Number: US-SUN PHARMACEUTICAL INDUSTRIES LTD-2014SUN01306

PATIENT

DRUGS (3)
  1. OXYCODONE [Suspect]
     Active Substance: OXYCODONE
     Dosage: 15 MG, OD
     Route: 065
  2. OXYCODONE [Suspect]
     Active Substance: OXYCODONE
     Indication: SPINAL CORD INJURY
     Dosage: 30 MG, OD
     Route: 065
     Dates: start: 201404, end: 201406
  3. OXYCODONE [Suspect]
     Active Substance: OXYCODONE
     Indication: ROTATOR CUFF SYNDROME
     Dosage: 20 MG, OD
     Route: 065

REACTIONS (5)
  - Dysphagia [Recovering/Resolving]
  - Pyrexia [Recovering/Resolving]
  - Eyelid irritation [Recovering/Resolving]
  - Abdominal pain upper [Recovering/Resolving]
  - Vomiting [Recovering/Resolving]

NARRATIVE: CASE EVENT DATE: 201404
